FAERS Safety Report 7811609-7 (Version None)
Quarter: 2011Q4

REPORT INFORMATION
  Report Type: 
  Country: None (occurrence: None)
  Receive Date: 20111013
  Receipt Date: 20110615
  Transmission Date: 20120403
  Serious: No
  Sender: FDA-Public Use
  Company Number: US-BAUSCH-2011BL003858

PATIENT
  Age: 84 Year
  Sex: Male

DRUGS (2)
  1. ZIRGAN [Suspect]
     Route: 047
  2. ZIRGAN [Suspect]
     Indication: CORNEAL EPITHELIUM DEFECT
     Route: 047
     Dates: start: 20110505

REACTIONS (1)
  - CONDITION AGGRAVATED [None]
